FAERS Safety Report 5515285-8 (Version None)
Quarter: 2007Q4

REPORT INFORMATION
  Report Type: 
  Country: None (occurrence: None)
  Receive Date: 20071113
  Receipt Date: 20071108
  Transmission Date: 20080405
  Serious: Yes (Death, Hospitalization)
  Sender: FDA-Public Use
  Company Number: FR-ROXANE LABORATORIES, INC-2007-BP-24226RO

PATIENT
  Age: 76 Year
  Sex: Male

DRUGS (9)
  1. METHOTREXATE [Suspect]
     Indication: PEMPHIGOID
  2. CALCIUM FOLINATE [Suspect]
  3. CLOBETASOL PROPIONATE [Concomitant]
     Indication: PEMPHIGOID
     Route: 061
  4. GABAPENTIN [Concomitant]
  5. CLOPIDOGREL [Concomitant]
  6. BUFLOMEDIL [Concomitant]
  7. OMEPRAZOLE [Concomitant]
  8. ANTIBIOTICS [Concomitant]
  9. NEUPOGEN [Concomitant]

REACTIONS (3)
  - PANCYTOPENIA [None]
  - PNEUMONIA [None]
  - PSEUDOMONAL SEPSIS [None]
